FAERS Safety Report 12699512 (Version 2)
Quarter: 2016Q4

REPORT INFORMATION
  Report Type: Spontaneous
  Country: US (occurrence: US)
  Receive Date: 20160830
  Receipt Date: 20161130
  Transmission Date: 20170207
  Serious: Yes (Other)
  Sender: FDA-Public Use
  Company Number: US-BAYER-2016-165220

PATIENT
  Age: 36 Year
  Sex: Female

DRUGS (1)
  1. MIRENA [Suspect]
     Active Substance: LEVONORGESTREL
     Indication: CONTRACEPTION
     Dosage: 20 MCG/24HR, CONT
     Route: 015
     Dates: start: 20151204, end: 20160823

REACTIONS (7)
  - Vaginal haemorrhage [None]
  - Infection [None]
  - Depressed mood [Not Recovered/Not Resolved]
  - Menorrhagia [None]
  - Genital haemorrhage [None]
  - Dysfunctional uterine bleeding [Recovering/Resolving]
  - Vulvovaginal mycotic infection [Not Recovered/Not Resolved]

NARRATIVE: CASE EVENT DATE: 20160719
